FAERS Safety Report 7146144-5 (Version None)
Quarter: 2010Q4

REPORT INFORMATION
  Report Type: 
  Country: None (occurrence: None)
  Receive Date: 20101124
  Receipt Date: 20101110
  Transmission Date: 20110411
  Serious: Yes (Hospitalization)
  Sender: FDA-Public Use
  Company Number: SPI201000292

PATIENT
  Age: 64 Year
  Sex: Female
  Weight: 63.5 kg

DRUGS (1)
  1. AMITIZA [Suspect]
     Indication: GASTROINTESTINAL DISORDER
     Dosage: 24 MCG, BID WITH FOOD, ORAL
     Route: 048
     Dates: start: 20070801, end: 20070801

REACTIONS (1)
  - COLITIS ISCHAEMIC [None]
